FAERS Safety Report 11254967 (Version 5)
Quarter: 2015Q3

REPORT INFORMATION
  Report Type: Report from Study
  Country: PL (occurrence: PL)
  Receive Date: 20150709
  Receipt Date: 20150819
  Transmission Date: 20151125
  Serious: Yes (Death, Hospitalization)
  Sender: FDA-Public Use
  Company Number: PL-BIOGENIDEC-2015BI091639

PATIENT
  Age: 56 Year
  Sex: Male
  Weight: 82 kg

DRUGS (1)
  1. BLINDED THERAPY [Suspect]
     Active Substance: INVESTIGATIONAL PRODUCT
     Indication: MULTIPLE SCLEROSIS
     Route: 048
     Dates: start: 20141230, end: 20150616

REACTIONS (1)
  - Acute myocardial infarction [Fatal]

NARRATIVE: CASE EVENT DATE: 20150623
